FAERS Safety Report 9510999 (Version 1)
Quarter: 2013Q3

REPORT INFORMATION
  Report Type: Spontaneous
  Country: US (occurrence: None)
  Receive Date: 20130905
  Receipt Date: 20130905
  Transmission Date: 20140515
  Serious: Yes (Hospitalization)
  Sender: FDA-Public Use
  Company Number: 1877266

PATIENT
  Age: 27 Year
  Sex: 0

DRUGS (6)
  1. BLEOMYCIN SULFATE [Suspect]
     Indication: HODGKIN^S DISEASE
  2. VINCRISTINE SULFATE [Suspect]
     Indication: HODGKIN^S DISEASE
  3. RITUXIMAB [Suspect]
     Indication: HODGKIN^S DISEASE
  4. ADRIAMYCIN [Suspect]
     Indication: HODGKIN^S DISEASE
  5. DEXAMETHASONE [Suspect]
     Indication: HODGKIN^S DISEASE
  6. GRANULOCYTE COLONY STIMULATING FACTOR [Suspect]

REACTIONS (1)
  - Pneumocystis jirovecii pneumonia [None]
